FAERS Safety Report 24908954 (Version 1)
Quarter: 2025Q1

REPORT INFORMATION
  Report Type: Spontaneous
  Country: SI (occurrence: SI)
  Receive Date: 20250131
  Receipt Date: 20250131
  Transmission Date: 20250408
  Serious: Yes (Hospitalization)
  Sender: JOHNSON AND JOHNSON
  Company Number: SI-JNJFOC-20250188776

PATIENT
  Age: 83 Year
  Sex: Male

DRUGS (2)
  1. HALDOL [Interacting]
     Active Substance: HALOPERIDOL
     Indication: Restlessness
     Route: 048
  2. CLONAZEPAM [Interacting]
     Active Substance: CLONAZEPAM
     Indication: Restlessness
     Route: 065

REACTIONS (3)
  - Loss of consciousness [Recovered/Resolved]
  - Acute myocardial infarction [Unknown]
  - Drug interaction [Unknown]
